FAERS Safety Report 4961329-1 (Version None)
Quarter: 2006Q2

REPORT INFORMATION
  Report Type: 
  Country: None (occurrence: None)
  Receive Date: 20060403
  Receipt Date: 20050928
  Transmission Date: 20061013
  Serious: Yes (Hospitalization, Disabling, Other)
  Sender: FDA-Public Use
  Company Number: US-MERCK-0509USA04438

PATIENT
  Sex: Male
  Weight: 177 kg

DRUGS (7)
  1. VIOXX [Suspect]
     Indication: ARTHRITIS
     Route: 048
     Dates: start: 20021101, end: 20040101
  2. BETAMETHASONE DIPROPIONATE AND CLOTRIMAZOLE [Concomitant]
     Route: 065
  3. KLOR-CON [Concomitant]
     Route: 065
  4. FUROSEMIDE [Concomitant]
     Route: 065
  5. TOPROL-XL [Concomitant]
     Route: 065
  6. ISOSORBIDE [Concomitant]
     Route: 065
  7. TORSEMIDE [Concomitant]
     Route: 065

REACTIONS (9)
  - ANGINA PECTORIS [None]
  - BACK INJURY [None]
  - CARDIOMEGALY [None]
  - CHEST PAIN [None]
  - FALL [None]
  - MYOCARDIAL INFARCTION [None]
  - POLYTRAUMATISM [None]
  - TRANSIENT ISCHAEMIC ATTACK [None]
  - VERTEBRAL INJURY [None]
